FAERS Safety Report 22392978 (Version 1)
Quarter: 2023Q2

REPORT INFORMATION
  Report Type: Spontaneous
  Country: JP (occurrence: JP)
  Receive Date: 20230601
  Receipt Date: 20230601
  Transmission Date: 20230721
  Serious: Yes (Death, Hospitalization, Other)
  Sender: FDA-Public Use
  Company Number: JP-AJANTA-2023AJA00107

PATIENT
  Age: 111 Day
  Sex: Male
  Weight: 0.495 kg

DRUGS (1)
  1. VALGANCICLOVIR [Suspect]
     Active Substance: VALGANCICLOVIR
     Indication: Cytomegalovirus infection

REACTIONS (7)
  - Multiple organ dysfunction syndrome [Fatal]
  - Staphylococcal sepsis [Fatal]
  - Bronchopulmonary dysplasia [Fatal]
  - Condition aggravated [Fatal]
  - Pulmonary hypertension [Fatal]
  - Pneumonia [Fatal]
  - Drug ineffective [Fatal]
